FAERS Safety Report 9929121 (Version 1)
Quarter: 2014Q1

REPORT INFORMATION
  Report Type: Spontaneous
  Country: FR (occurrence: FR)
  Receive Date: 20140227
  Receipt Date: 20140227
  Transmission Date: 20141002
  Serious: Yes (Other)
  Sender: FDA-Public Use
  Company Number: FR-VERTEX PHARMACEUTICALS INC-2014-000926

PATIENT
  Sex: 0

DRUGS (1)
  1. KALYDECO [Suspect]
     Indication: CYSTIC FIBROSIS
     Dosage: 150 MG, BID

REACTIONS (3)
  - Tachyarrhythmia [Unknown]
  - Asthma [Unknown]
  - Atrial fibrillation [Unknown]
